FAERS Safety Report 13619872 (Version 1)
Quarter: 2017Q2

REPORT INFORMATION
  Report Type: Spontaneous
  Country: TR (occurrence: TR)
  Receive Date: 20170606
  Receipt Date: 20170606
  Transmission Date: 20170830
  Serious: Yes (Other)
  Sender: FDA-Public Use
  Company Number: TR-JNJFOC-20170602650

PATIENT
  Age: 42 Year
  Sex: Male

DRUGS (4)
  1. CIRRUS [Suspect]
     Active Substance: CETIRIZINE HYDROCHLORIDE\PSEUDOEPHEDRINE HYDROCHLORIDE
     Indication: TINNITUS
     Dosage: 2 TABLETS, DAILY
     Route: 048
     Dates: start: 20170524
  2. ILIADIN [Concomitant]
     Indication: TINNITUS
     Route: 065
  3. CIRRUS [Suspect]
     Active Substance: CETIRIZINE HYDROCHLORIDE\PSEUDOEPHEDRINE HYDROCHLORIDE
     Indication: EAR DISCOMFORT
     Dosage: 2 TABLETS, DAILY
     Route: 048
     Dates: start: 20170524
  4. ILIADIN [Concomitant]
     Indication: EAR DISCOMFORT
     Route: 065

REACTIONS (2)
  - Tinnitus [Not Recovered/Not Resolved]
  - Eye pain [Not Recovered/Not Resolved]

NARRATIVE: CASE EVENT DATE: 201705
